FAERS Safety Report 21962601 (Version 1)
Quarter: 2023Q1

REPORT INFORMATION
  Report Type: Spontaneous
  Country: US (occurrence: None)
  Receive Date: 20230206
  Receipt Date: 20230206
  Transmission Date: 20230418
  Serious: Yes (Death)
  Sender: FDA-Public Use
  Company Number: None

PATIENT
  Age: 83 Year
  Sex: Male
  Weight: 97.52 kg

DRUGS (8)
  1. ARANESP [Suspect]
     Active Substance: DARBEPOETIN ALFA
     Indication: Myelodysplastic syndrome
     Dosage: FREQUENCY : EVERY OTHER WEEK;?
     Route: 058
  2. LISINOPRIL [Concomitant]
  3. METOPROLOL TARTRATE [Concomitant]
  4. ONGLYZA [Concomitant]
  5. PAXIL [Concomitant]
  6. PRAVASTATIN [Concomitant]
  7. ULORIC [Concomitant]
  8. VITAMIN D [Concomitant]

REACTIONS (2)
  - Fall [None]
  - Hip fracture [None]
